FAERS Safety Report 18512114 (Version 1)
Quarter: 2020Q4

REPORT INFORMATION
  Report Type: Spontaneous
  Country: GB (occurrence: GB)
  Receive Date: 20201117
  Receipt Date: 20201117
  Transmission Date: 20210114
  Serious: Yes (Hospitalization, Other)
  Sender: FDA-Public Use
  Company Number: GB-MYLANLABS-2020M1094185

PATIENT
  Age: 78 Year
  Sex: Male
  Weight: 74 kg

DRUGS (23)
  1. OMEPRAZOLE. [Concomitant]
     Active Substance: OMEPRAZOLE
     Dosage: 20 MILLIGRAM, QD (WHEN REQUIRED)
     Dates: start: 20200708, end: 20200929
  2. VENTOLINE                          /00139501/ [Concomitant]
     Active Substance: ALBUTEROL
     Dosage: INHALE 1-2 DOSES UP TO 4 TIMES A DAY
     Route: 055
     Dates: start: 20200710
  3. CHLORAMPHENICOL [Concomitant]
     Active Substance: CHLORAMPHENICOL
     Dosage: ONE DROP EVERY TWO HOURS FOR THE FIRST 48 HOURS THEN FOUR TIMES A DAY
     Dates: start: 20200713
  4. ALLOPURINOL. [Concomitant]
     Active Substance: ALLOPURINOL
     Dosage: 100 MILLIGRAM, QD
     Dates: start: 20200708
  5. PARACETAMOL [Concomitant]
     Active Substance: ACETAMINOPHEN
     Dosage: 1 TO 2 TABLETS UP TO FOUR TIMES DAILY MAX 8 PER DAY.
     Dates: start: 20200708, end: 20200929
  6. POMALIDOMIDE [Concomitant]
     Active Substance: POMALIDOMIDE
     Indication: PLASMA CELL MYELOMA
     Dosage: UNK
  7. DAKTARIN                           /00310801/ [Concomitant]
     Active Substance: MICONAZOLE NITRATE
     Dosage: 4 DOSAGE FORM, QD (FOR ONE WEEK 20MG/G  )
     Route: 050
     Dates: start: 20200907
  8. ATORVASTATIN [Concomitant]
     Active Substance: ATORVASTATIN
     Dosage: 20 MILLIGRAM, QD
     Dates: start: 20200708
  9. PERINDOPRIL TERT-BUTYLAMINE [Concomitant]
     Active Substance: PERINDOPRIL ERBUMINE
     Dosage: 4 MILLIGRAM, QD
     Dates: start: 20200708
  10. HYDROMOL                           /06335901/ [Concomitant]
     Active Substance: PARAFFIN\WAX, EMULSIFYING
     Dosage: UNK UNK, PRN
     Dates: start: 20200708, end: 20200929
  11. BISOPROLOL [Suspect]
     Active Substance: BISOPROLOL
     Indication: ATRIOVENTRICULAR BLOCK
     Dosage: 2.5 MILLIGRAM
     Route: 048
     Dates: start: 20120620, end: 20200929
  12. LAXIDO [Concomitant]
     Active Substance: POLYETHYLENE GLYCOL 3350\POTASSIUM CHLORIDE\SODIUM BICARBONATE\SODIUM CHLORIDE
     Dosage: TAKE ONE OR TWO SACHETS DAILY
     Route: 048
     Dates: start: 20200708, end: 20200929
  13. APIXABAN [Concomitant]
     Active Substance: APIXABAN
     Indication: PLASMA CELL MYELOMA
     Dosage: UNK
  14. CETRABEN                           /01690401/ [Concomitant]
     Dosage: UNK UNK, PRN
     Dates: start: 20200708
  15. CETIRIZINE [Concomitant]
     Active Substance: CETIRIZINE HYDROCHLORIDE
     Dosage: 10 MILLIGRAM, QD
     Dates: start: 20200708
  16. ZOMORPH [Concomitant]
     Active Substance: MORPHINE SULFATE
     Dosage: 20 MILLIGRAM, QD
     Dates: start: 20200708
  17. AMOXICILLIN. [Concomitant]
     Active Substance: AMOXICILLIN
     Dosage: 1500 MILLIGRAM, QD
     Dates: start: 20200708
  18. HYLO-FORTE [Concomitant]
     Active Substance: HYALURONATE SODIUM
     Dosage: TO LEFT EYE AS PER INSTRUCTIONS FROM HOSPITAL
     Dates: start: 20200708
  19. COLCHICINE. [Concomitant]
     Active Substance: COLCHICINE
     Dosage: 500 MICROGRAM, QD (FOR 6 DAYS)
     Dates: start: 20200925
  20. MST CONTINUS [Concomitant]
     Active Substance: MORPHINE SULFATE
     Dosage: 10 MILLIGRAM, QD
     Dates: start: 20200918
  21. CIPROFLOXACIN. [Concomitant]
     Active Substance: CIPROFLOXACIN
     Dosage: 1000 MILLIGRAM, QD
     Dates: start: 20200716
  22. MORPHINE [Concomitant]
     Active Substance: MORPHINE
     Dosage: TAKE 2.5ML UP TO FOUR TIMES A DAY. 10MG/5ML
     Route: 048
     Dates: start: 20200714
  23. ACICLOVIR [Concomitant]
     Active Substance: ACYCLOVIR
     Indication: PLASMA CELL MYELOMA
     Dosage: UNK

REACTIONS (2)
  - Atrioventricular block second degree [Recovered/Resolved]
  - Balance disorder [Recovered/Resolved]

NARRATIVE: CASE EVENT DATE: 20200927
